FAERS Safety Report 23106774 (Version 3)
Quarter: 2023Q4

REPORT INFORMATION
  Report Type: Spontaneous
  Country: US (occurrence: US)
  Receive Date: 20231026
  Receipt Date: 20231120
  Transmission Date: 20240110
  Serious: Yes (Other)
  Sender: FDA-Public Use
  Company Number: US-PIRAMAL CRITICAL CARE LIMITED-2023-PPL-000488

PATIENT

DRUGS (3)
  1. GABLOFEN [Suspect]
     Active Substance: BACLOFEN
     Indication: Product used for unknown indication
     Dosage: UNK
     Route: 037
  2. GABLOFEN [Suspect]
     Active Substance: BACLOFEN
     Dosage: DOSE DECREASED OF THE PUMP BY 5.9%
     Route: 037
  3. GABLOFEN [Suspect]
     Active Substance: BACLOFEN
     Dosage: DECREASED THE BACLOFEN DOSE AGAIN
     Route: 037

REACTIONS (2)
  - Fall [Recovered/Resolved]
  - Hypotonia [Recovered/Resolved]
